FAERS Safety Report 6983920-3 (Version None)
Quarter: 2010Q3

REPORT INFORMATION
  Report Type: 
  Country: None (occurrence: None)
  Receive Date: 20100914
  Receipt Date: 20090408
  Transmission Date: 20110219
  Serious: No
  Sender: FDA-Public Use
  Company Number: US-WYE-H08878509

PATIENT
  Age: 74 Year
  Sex: Female
  Weight: 70.37 kg

DRUGS (1)
  1. ADVIL LIQUI-GELS [Suspect]
     Indication: ENDODONTIC PROCEDURE
     Route: 048
     Dates: start: 20090402, end: 20090404

REACTIONS (3)
  - ANORECTAL DISCOMFORT [None]
  - NAUSEA [None]
  - VULVOVAGINAL DISCOMFORT [None]
